FAERS Safety Report 7629792-5 (Version None)
Quarter: 2011Q3

REPORT INFORMATION
  Report Type: 
  Country: None (occurrence: None)
  Receive Date: 20110722
  Receipt Date: 20110719
  Transmission Date: 20111222
  Serious: Yes (Other)
  Sender: FDA-Public Use
  Company Number: US-PFIZER INC-2011035884

PATIENT
  Sex: Female
  Weight: 43.537 kg

DRUGS (7)
  1. DIGOXIN [Concomitant]
     Dosage: 0.25 MG, UNK
  2. CHANTIX [Suspect]
     Dosage: 1 MG, 2X/DAY
     Route: 048
     Dates: start: 20110101, end: 20110101
  3. HYDROCHLOROTHIAZIDE [Concomitant]
     Dosage: 25 MG, UNK
  4. STIRIPENTOL [Concomitant]
     Dosage: UNK
  5. CHANTIX [Suspect]
     Indication: SMOKING CESSATION THERAPY
     Dosage: 0.5 MG, 1X/DAY
     Route: 048
     Dates: start: 20110122, end: 20110101
  6. LISINOPRIL [Concomitant]
     Dosage: 20 MG, UNK
  7. CHANTIX [Suspect]
     Dosage: 0.5 MG, DAILY
     Route: 048
     Dates: start: 20110215

REACTIONS (6)
  - SKIN EXFOLIATION [None]
  - HEADACHE [None]
  - STRESS [None]
  - DEPRESSED MOOD [None]
  - NERVOUSNESS [None]
  - DIARRHOEA [None]
